FAERS Safety Report 10640645 (Version 2)
Quarter: 2014Q4

REPORT INFORMATION
  Report Type: Report from Study
  Country: DE (occurrence: DE)
  Receive Date: 20141209
  Receipt Date: 20141209
  Transmission Date: 20150529
  Serious: Yes (Other)
  Sender: FDA-Public Use
  Company Number: PHHO2012DE014816

PATIENT
  Age: 25 Year
  Sex: Male

DRUGS (1)
  1. AMN107 [Suspect]
     Active Substance: NILOTINIB
     Indication: CHRONIC MYELOID LEUKAEMIA
     Dosage: 600 MG/L
     Dates: start: 20111031

REACTIONS (2)
  - Blood creatine phosphokinase increased [Recovered/Resolved]
  - Exposure via father [Unknown]

NARRATIVE: CASE EVENT DATE: 20121010
